FAERS Safety Report 8181166-7 (Version None)
Quarter: 2012Q1

REPORT INFORMATION
  Report Type: 
  Country: None (occurrence: None)
  Receive Date: 20120302
  Receipt Date: 20120220
  Transmission Date: 20120608
  Serious: Yes (Hospitalization, Other)
  Sender: FDA-Public Use
  Company Number: CA-GLAXOSMITHKLINE-A0966590A

PATIENT
  Sex: Male
  Weight: 67.7 kg

DRUGS (2)
  1. ADVAIR DISKUS 100/50 [Suspect]
     Indication: CHRONIC OBSTRUCTIVE PULMONARY DISEASE
     Dosage: 1PUFF TWICE PER DAY
     Route: 055
     Dates: start: 20060101
  2. CALCIUM [Concomitant]
     Indication: OSTEOPOROSIS
     Route: 065

REACTIONS (2)
  - DYSPNOEA [None]
  - CIRCULATORY COLLAPSE [None]
